FAERS Safety Report 4568227-6 (Version None)
Quarter: 2005Q1

REPORT INFORMATION
  Report Type: 
  Country: None (occurrence: None)
  Receive Date: 20050131
  Receipt Date: 20050118
  Transmission Date: 20050727
  Serious: Yes (Other)
  Sender: FDA-Public Use
  Company Number: 2005015560

PATIENT
  Sex: Female

DRUGS (1)
  1. COOL MINT LISTERINE (MENTHOL, METHYL SALICYLATE, EUCALYPTOL, THYMOL) [Suspect]
     Indication: DENTAL DISORDER PROPHYLAXIS
     Dosage: AS RECOMMENDED BID,ORAL TOPICAL
     Dates: start: 20040101, end: 20050101

REACTIONS (2)
  - GINGIVAL DISORDER [None]
  - ORAL DISCOMFORT [None]
